FAERS Safety Report 20552834 (Version 1)
Quarter: 2022Q1

REPORT INFORMATION
  Report Type: Spontaneous
  Country: US (occurrence: None)
  Receive Date: 20220304
  Receipt Date: 20220304
  Transmission Date: 20220423
  Serious: Yes (Life-Threatening, Hospitalization)
  Sender: FDA-Public Use
  Company Number: None

PATIENT
  Age: 74 Year
  Sex: Male

DRUGS (1)
  1. WARFARIN SODIUM [Suspect]
     Active Substance: WARFARIN SODIUM
     Indication: Pulmonary embolism
     Dosage: 5 MG EVERY DAY PO?
     Route: 048
     Dates: start: 20190419

REACTIONS (6)
  - Transient ischaemic attack [None]
  - Intestinal obstruction [None]
  - Muscular weakness [None]
  - Hyponatraemia [None]
  - Abdominal distension [None]
  - Dehydration [None]

NARRATIVE: CASE EVENT DATE: 20220223
